FAERS Safety Report 14220849 (Version 1)
Quarter: 2020Q3

REPORT INFORMATION
  Report Type: Report from Study
  Country: US (occurrence: US)
  Receive Date: 20171124
  Receipt Date: 20171124
  Transmission Date: 20201105
  Serious: Yes (Hospitalization)
  Sender: FDA-Public Use
  Company Number: US-ASTRAZENECA-2017SF16597

PATIENT
  Age: 20986 Day
  Sex: Female
  Weight: 59.2 kg

DRUGS (2)
  1. TREMELIMUMAB. [Suspect]
     Active Substance: TREMELIMUMAB
     Indication: OVARIAN CANCER RECURRENT
     Route: 042
     Dates: start: 20170621, end: 20171011
  2. OLAPARIB. [Suspect]
     Active Substance: OLAPARIB
     Indication: OVARIAN CANCER RECURRENT
     Route: 048
     Dates: start: 20170621, end: 20171105

REACTIONS (6)
  - Fatigue [Unknown]
  - Decreased appetite [Unknown]
  - Dehydration [Unknown]
  - Nausea [Unknown]
  - Chills [Unknown]
  - Lethargy [Unknown]

NARRATIVE: CASE EVENT DATE: 20171113
